FAERS Safety Report 14427554 (Version 1)
Quarter: 2018Q1

REPORT INFORMATION
  Report Type: Spontaneous
  Country: IN (occurrence: IN)
  Receive Date: 20180123
  Receipt Date: 20180123
  Transmission Date: 20180509
  Serious: Yes (Death, Hospitalization, Other)
  Sender: FDA-Public Use
  Company Number: IN-PHARMASCIENCE INC.-2040649

PATIENT
  Age: 30 Month
  Sex: Male
  Weight: 10 kg

DRUGS (3)
  1. BUSULFAN. [Suspect]
     Active Substance: BUSULFAN
     Indication: BONE MARROW CONDITIONING REGIMEN
     Route: 048
  2. MELPHALAN HYDROCHLORIDE. [Concomitant]
     Active Substance: MELPHALAN HYDROCHLORIDE
     Route: 065
  3. URSODIOL. [Concomitant]
     Active Substance: URSODIOL

REACTIONS (12)
  - Organising pneumonia [Fatal]
  - Multiple organ dysfunction syndrome [Fatal]
  - Idiopathic pneumonia syndrome [Fatal]
  - Subcutaneous emphysema [Fatal]
  - Shock [Fatal]
  - Acute respiratory distress syndrome [Fatal]
  - Diffuse alveolar damage [Fatal]
  - Pulmonary arterial hypertension [Fatal]
  - Interstitial lung disease [Fatal]
  - Cardiac arrest [Fatal]
  - Venoocclusive liver disease [Fatal]
  - Pneumothorax [Not Recovered/Not Resolved]
